FAERS Safety Report 7694328-X (Version None)
Quarter: 2011Q3

REPORT INFORMATION
  Report Type: 
  Country: None (occurrence: None)
  Receive Date: 20110819
  Receipt Date: 20110810
  Transmission Date: 20111222
  Serious: Yes (Death, Other)
  Sender: FDA-Public Use
  Company Number: US-EISAI INC-E3810-04860-SPO-US

PATIENT
  Age: 65 Year
  Sex: Female

DRUGS (1)
  1. ACIPHEX [Suspect]
     Indication: EROSIVE OESOPHAGITIS
     Route: 048
     Dates: start: 20110804

REACTIONS (3)
  - DYSPNOEA [None]
  - SWOLLEN TONGUE [None]
  - EYE MOVEMENT DISORDER [None]
